FAERS Safety Report 4313473-X (Version None)
Quarter: 2004Q1

REPORT INFORMATION
  Report Type: 
  Country: None (occurrence: None)
  Receive Date: 20040308
  Receipt Date: 20040205
  Transmission Date: 20041129
  Serious: Yes (Other)
  Sender: FDA-Public Use
  Company Number: DE-ROCHE-358383

PATIENT
  Age: 90 Year
  Sex: Female

DRUGS (5)
  1. TAMIFLU [Suspect]
     Indication: INFLUENZA
     Route: 048
     Dates: start: 20040115, end: 20040119
  2. VERAPAMIL [Concomitant]
     Indication: ARRHYTHMIA
     Route: 048
  3. DIGITOXIN TAB [Concomitant]
     Indication: ARRHYTHMIA
     Route: 048
  4. EUTHYROX [Concomitant]
     Indication: GOITRE
     Route: 048
  5. XIMOVAN [Concomitant]
     Route: 048

REACTIONS (4)
  - AGGRESSION [None]
  - CONFUSIONAL STATE [None]
  - DELUSIONAL PERCEPTION [None]
  - DISORIENTATION [None]
